FAERS Safety Report 8372748-8 (Version None)
Quarter: 2012Q2

REPORT INFORMATION
  Report Type: 
  Country: None (occurrence: None)
  Receive Date: 20120521
  Receipt Date: 20120514
  Transmission Date: 20120825
  Serious: Yes (Death, Hospitalization, Other)
  Sender: FDA-Public Use
  Company Number: US-ASTELLAS-2012US000721

PATIENT
  Sex: Female

DRUGS (2)
  1. TARCEVA [Suspect]
     Indication: NON-SMALL CELL LUNG CANCER
     Dosage: 100 MG, UID/QD
     Route: 048
     Dates: start: 20100301
  2. TARCEVA [Suspect]
     Dosage: 50 MG, UID/QD
     Route: 048
     Dates: start: 20100601

REACTIONS (21)
  - DYSPHAGIA [None]
  - INCORRECT DOSE ADMINISTERED [None]
  - DYSPNOEA [None]
  - MALAISE [None]
  - WEIGHT DECREASED [None]
  - PROCEDURAL COMPLICATION [None]
  - DEHYDRATION [None]
  - MALIGNANT PLEURAL EFFUSION [None]
  - PAIN IN EXTREMITY [None]
  - NAUSEA [None]
  - DEATH [None]
  - PNEUMOTHORAX TRAUMATIC [None]
  - ASTHENIA [None]
  - DIARRHOEA [None]
  - BACK PAIN [None]
  - NEOPLASM MALIGNANT [None]
  - INTENTION TREMOR [None]
  - PRODUCTIVE COUGH [None]
  - RASH [None]
  - HYPOPHAGIA [None]
  - POOR DENTAL CONDITION [None]
